FAERS Safety Report 8542929-9 (Version None)
Quarter: 2012Q3

REPORT INFORMATION
  Report Type: 
  Country: None (occurrence: None)
  Receive Date: 20120727
  Receipt Date: 20120723
  Transmission Date: 20120928
  Serious: No
  Sender: FDA-Public Use
  Company Number: US-PFIZER INC-2012119637

PATIENT
  Sex: Male
  Weight: 68.5 kg

DRUGS (5)
  1. PRED FORTE [Concomitant]
     Indication: EYE DISORDER
     Dosage: EYE DROP IN EACH EYE EVERY OTHER DAY
     Route: 047
  2. BENICAR HCT [Concomitant]
     Indication: HYPERTENSION
     Dosage: 20 MG, 1X/DAY
  3. LEVOTHYROXINE [Concomitant]
     Indication: THYROID DISORDER
     Dosage: 200 UG, UNK
  4. SUTENT [Suspect]
     Indication: THYROID CANCER
     Dosage: 50 MG, 1X/DAY
     Route: 048
     Dates: start: 20120301
  5. LOVASTATIN [Concomitant]
     Dosage: 200 MG, UNK

REACTIONS (1)
  - WHITE BLOOD CELL COUNT DECREASED [None]
